FAERS Safety Report 7567982-0 (Version None)
Quarter: 2011Q2

REPORT INFORMATION
  Report Type: 
  Country: None (occurrence: None)
  Receive Date: 20110616
  Receipt Date: 20110511
  Transmission Date: 20111010
  Serious: Yes (Hospitalization)
  Sender: FDA-Public Use
  Company Number: 2011-1885

PATIENT
  Age: 67 Year
  Sex: Female

DRUGS (1)
  1. APO-GO AMPOULES (APO-GO) (APOMORPHINE HYDROCHLORIDE) (APOMORPHINE HYDR [Suspect]
     Indication: PRODUCT USED FOR UNKNOWN INDICATION
     Dosage: NOT REPORTED, (NOT REPORTED, FOR 24 HOURS), SUBCUTANEOUS
     Route: 058
     Dates: start: 20100816

REACTIONS (2)
  - HYPERKINESIA [None]
  - UNEVALUABLE EVENT [None]
